FAERS Safety Report 8096905-3 (Version None)
Quarter: 2012Q1

REPORT INFORMATION
  Report Type: 
  Country: None (occurrence: None)
  Receive Date: 20120129
  Receipt Date: 20111116
  Transmission Date: 20120608
  Serious: No
  Sender: FDA-Public Use
  Company Number: US-ABBOTT-11P-163-0874492-00

PATIENT
  Sex: Male
  Weight: 78.088 kg

DRUGS (4)
  1. HUMIRA [Suspect]
     Indication: RHEUMATOID ARTHRITIS
     Dates: start: 20100101
  2. ASPIRIN [Concomitant]
     Indication: ILL-DEFINED DISORDER
  3. CELEBREX [Concomitant]
     Indication: RHEUMATOID ARTHRITIS
  4. ATENOLOL [Concomitant]
     Indication: HYPERTENSION

REACTIONS (4)
  - PRURITUS [None]
  - DEVICE MALFUNCTION [None]
  - INCORRECT DOSE ADMINISTERED [None]
  - ERYTHEMA [None]
